FAERS Safety Report 22233449 (Version 1)
Quarter: 2023Q2

REPORT INFORMATION
  Report Type: Spontaneous
  Country: US (occurrence: None)
  Receive Date: 20230419
  Receipt Date: 20230419
  Transmission Date: 20230722
  Serious: Yes (Other)
  Sender: FDA-Public Use
  Company Number: None

PATIENT
  Age: 67 Year
  Sex: Female
  Weight: 79.2 kg

DRUGS (1)
  1. PROLIA [Suspect]
     Active Substance: DENOSUMAB
     Indication: Osteoporosis
     Dates: start: 20230329, end: 20230329

REACTIONS (5)
  - Myalgia [None]
  - Chest pain [None]
  - Back pain [None]
  - Influenza like illness [None]
  - Muscle spasms [None]

NARRATIVE: CASE EVENT DATE: 20230329
